FAERS Safety Report 6026398-9 (Version None)
Quarter: 2009Q1

REPORT INFORMATION
  Report Type: 
  Country: None (occurrence: None)
  Receive Date: 20090102
  Receipt Date: 20081230
  Transmission Date: 20090719
  Serious: Yes (Life-Threatening, Hospitalization)
  Sender: FDA-Public Use
  Company Number: PHHY2008GB25374

PATIENT
  Sex: Female

DRUGS (1)
  1. CLOZARIL [Suspect]
     Indication: SCHIZOPHRENIA
     Dosage: 100 MG DAILY
     Route: 048
     Dates: start: 20071004, end: 20081016

REACTIONS (10)
  - C-REACTIVE PROTEIN INCREASED [None]
  - DRUG LEVEL CHANGED [None]
  - HAEMOGLOBIN DECREASED [None]
  - INCONTINENCE [None]
  - KIDNEY INFECTION [None]
  - LOWER RESPIRATORY TRACT INFECTION [None]
  - PLATELET COUNT INCREASED [None]
  - SKIN DISCOLOURATION [None]
  - TACHYCARDIA [None]
  - URINARY TRACT INFECTION [None]
